FAERS Safety Report 15468132 (Version 1)
Quarter: 2018Q4

REPORT INFORMATION
  Report Type: Spontaneous
  Country: JP (occurrence: JP)
  Receive Date: 20181005
  Receipt Date: 20181005
  Transmission Date: 20190204
  Serious: Yes (Other)
  Sender: FDA-Public Use
  Company Number: JP-PFIZER INC-2018388768

PATIENT
  Age: 70 Year

DRUGS (1)
  1. VFEND [Suspect]
     Active Substance: VORICONAZOLE

REACTIONS (2)
  - Hallucination, auditory [Recovered/Resolved]
  - Hallucination [Recovered/Resolved]
